FAERS Safety Report 18322245 (Version 1)
Quarter: 2020Q3

REPORT INFORMATION
  Report Type: Spontaneous
  Country: US (occurrence: US)
  Receive Date: 20200929
  Receipt Date: 20200929
  Transmission Date: 20201103
  Serious: Yes (Death, Hospitalization, Other)
  Sender: FDA-Public Use
  Company Number: US-AUROBINDO-AUR-APL-2012-04523

PATIENT
  Age: 16 Year
  Sex: Female

DRUGS (1)
  1. MINOCYCLINE [Suspect]
     Active Substance: MINOCYCLINE HYDROCHLORIDE
     Indication: ACNE
     Dosage: UNK
     Route: 065

REACTIONS (10)
  - Colitis ischaemic [Unknown]
  - Ischaemia [Unknown]
  - Fungaemia [Unknown]
  - Cardiogenic shock [Unknown]
  - Multiple organ dysfunction syndrome [Unknown]
  - Death [Fatal]
  - Drug reaction with eosinophilia and systemic symptoms [Unknown]
  - Cardiomyopathy [Recovered/Resolved]
  - Pulmonary embolism [Unknown]
  - Bacteraemia [Unknown]
